FAERS Safety Report 9485592 (Version 1)
Quarter: 2013Q3

REPORT INFORMATION
  Report Type: Spontaneous
  Country: US (occurrence: US)
  Receive Date: 20130829
  Receipt Date: 20130829
  Transmission Date: 20140515
  Serious: No
  Sender: FDA-Public Use
  Company Number: US-009507513-1308USA007820

PATIENT
  Age: 28 Year
  Sex: Female

DRUGS (3)
  1. HEXADROL TABLETS [Suspect]
     Indication: IMMUNE THROMBOCYTOPENIC PURPURA
     Route: 048
  2. ROMIPLOSTIM [Suspect]
     Dosage: 3 MICROGRAMS/KG/WK
  3. GLOBULIN, IMMUNE [Concomitant]
     Route: 042

REACTIONS (1)
  - Exposure during pregnancy [Recovered/Resolved]
